FAERS Safety Report 14078649 (Version 1)
Quarter: 2017Q4

REPORT INFORMATION
  Report Type: Spontaneous
  Country: US (occurrence: US)
  Receive Date: 20171012
  Receipt Date: 20171012
  Transmission Date: 20180321
  Serious: Yes (Other)
  Sender: FDA-Public Use
  Company Number: None

PATIENT
  Sex: Female
  Weight: 90.85 kg

DRUGS (8)
  1. LOSARTAN. [Concomitant]
     Active Substance: LOSARTAN
  2. FASLODEX [Concomitant]
     Active Substance: FULVESTRANT
  3. ACETAMINOPHEN. [Concomitant]
     Active Substance: ACETAMINOPHEN
  4. TUMS [Concomitant]
     Active Substance: CALCIUM CARBONATE
  5. IBRANCE [Suspect]
     Active Substance: PALBOCICLIB
     Indication: BREAST CANCER
     Dosage: ?          OTHER FREQUENCY:QDX21 DAYS, 7D OFF;?
     Route: 048
     Dates: start: 20170828, end: 20171011
  6. ZOMETA [Concomitant]
     Active Substance: ZOLEDRONIC ACID
  7. VICODIN [Concomitant]
     Active Substance: ACETAMINOPHEN\HYDROCODONE BITARTRATE
  8. REFRESH [Concomitant]
     Active Substance: UNSPECIFIED INGREDIENT

REACTIONS (3)
  - Alopecia [None]
  - Stomatitis [None]
  - Nausea [None]
